FAERS Safety Report 5774935-1 (Version None)
Quarter: 2008Q2

REPORT INFORMATION
  Report Type: 
  Country: None (occurrence: None)
  Receive Date: 20080617
  Receipt Date: 20080612
  Transmission Date: 20081010
  Serious: Yes (Other)
  Sender: FDA-Public Use
  Company Number: US-SP-2008-00565

PATIENT
  Age: 36 Year
  Sex: Female

DRUGS (1)
  1. TUBERCULIN PPD [Suspect]
     Indication: TUBERCULIN TEST
     Route: 065
     Dates: start: 20080201

REACTIONS (5)
  - BREAST PAIN [None]
  - HOT FLUSH [None]
  - LYMPHADENOPATHY [None]
  - MUSCULOSKELETAL PAIN [None]
  - PAIN IN EXTREMITY [None]
